FAERS Safety Report 10384694 (Version 2)
Quarter: 2014Q3

REPORT INFORMATION
  Report Type: Spontaneous
  Country: GB (occurrence: GB)
  Receive Date: 20140814
  Receipt Date: 20140918
  Transmission Date: 20150326
  Serious: Yes (Other)
  Sender: FDA-Public Use
  Company Number: GB-ASTRAZENECA-2014SE56967

PATIENT
  Age: 35 Year
  Sex: Female

DRUGS (1)
  1. XYLOCAINE WITH EPINEPHRINE [Suspect]
     Active Substance: EPINEPHRINE BITARTRATE\LIDOCAINE HYDROCHLORIDE
     Indication: LOCAL ANAESTHESIA
     Dosage: LIGNOCAINE 2% WITH ADRENALINE 1:200,000, 20ML, VIAL, 20MG/ML/5MCG/ML
     Route: 065
     Dates: start: 20110606

REACTIONS (1)
  - Skin necrosis [Unknown]
